FAERS Safety Report 9538223 (Version 1)
Quarter: 2013Q3

REPORT INFORMATION
  Report Type: Spontaneous
  Country: CA (occurrence: CA)
  Receive Date: 20130920
  Receipt Date: 20130920
  Transmission Date: 20140515
  Serious: Yes (Hospitalization, Other)
  Sender: FDA-Public Use
  Company Number: CA-ROCHE-1274124

PATIENT
  Age: 35 Year
  Sex: Female
  Weight: 72 kg

DRUGS (10)
  1. CEFTRIAXONE [Suspect]
     Indication: PRODUCT USED FOR UNKNOWN INDICATION
     Dosage: THERAPY DURATION: 28.0 DAYS
     Route: 030
  2. CLINDAMYCIN [Suspect]
     Indication: PRODUCT USED FOR UNKNOWN INDICATION
     Dosage: THERAPY DURATION: 3.0 DAYS
     Route: 065
  3. FLAGYL [Suspect]
     Indication: PRODUCT USED FOR UNKNOWN INDICATION
     Dosage: THERAPY DURATINO: 18.0 DAYS
     Route: 065
  4. GENTAMICIN [Suspect]
     Indication: PRODUCT USED FOR UNKNOWN INDICATION
     Dosage: THERAPY DURATION: 3.0 DAYS
     Route: 065
  5. PRIVIGEN [Suspect]
     Indication: PRODUCT USED FOR UNKNOWN INDICATION
     Dosage: FREQUENCY: TOTAL; THERAPY DURATION: 1.0 DAY
     Route: 042
  6. PRIVIGEN [Suspect]
     Dosage: FREQUENCY: TOTAL; THERAPY DURATION: 2.0 DAYS
     Route: 042
  7. PRIVIGEN [Suspect]
     Dosage: FREQUENCY: TOTAL; THERAPY DURATION: 1.0 DAY
     Route: 042
  8. PRIVIGEN [Suspect]
     Dosage: FREQUENCY: TOTAL; THERAPY DURATION: 1.0 DAY
     Route: 042
  9. PRIVIGEN [Suspect]
     Dosage: FREQUENCY: TOTAL; THERAPY DURATION: 3.0 DAYS
     Route: 042
  10. FRAGMIN [Concomitant]
     Route: 065

REACTIONS (4)
  - Anaemia [Recovered/Resolved with Sequelae]
  - Haemoglobin decreased [Recovered/Resolved with Sequelae]
  - Haemolytic anaemia [Recovered/Resolved with Sequelae]
  - Delayed haemolytic transfusion reaction [Unknown]
